FAERS Safety Report 14994218 (Version 1)
Quarter: 2018Q2

REPORT INFORMATION
  Report Type: Spontaneous
  Country: US (occurrence: US)
  Receive Date: 20180521
  Receipt Date: 20180521
  Transmission Date: 20180711
  Serious: Yes (Disabling, Other)
  Sender: FDA-Public Use
  Company Number: None

PATIENT
  Age: 56 Year
  Sex: Male
  Weight: 81 kg

DRUGS (5)
  1. XARELTO [Suspect]
     Active Substance: RIVAROXABAN
     Indication: PULMONARY EMBOLISM
     Dosage: ?          QUANTITY:1 TABLET(S);?
     Route: 048
     Dates: start: 20180205, end: 20180220
  2. TIMILOL [Concomitant]
  3. LUMIGAN [Concomitant]
     Active Substance: BIMATOPROST
  4. CELEXA [Concomitant]
     Active Substance: CITALOPRAM HYDROBROMIDE
  5. CITALOPRAM [Concomitant]
     Active Substance: CITALOPRAM HYDROBROMIDE

REACTIONS (20)
  - Glossodynia [None]
  - Skin exfoliation [None]
  - Neuropathy peripheral [None]
  - Tongue exfoliation [None]
  - Mouth swelling [None]
  - Plicated tongue [None]
  - Oral mucosal erythema [None]
  - Drooling [None]
  - Skin fissures [None]
  - Paraesthesia oral [None]
  - Lip swelling [None]
  - Chapped lips [None]
  - Stevens-Johnson syndrome [None]
  - Hypoaesthesia oral [None]
  - Oral pain [None]
  - Lip erythema [None]
  - Lip exfoliation [None]
  - Lip pain [None]
  - Oral mucosal exfoliation [None]
  - Stomatitis [None]

NARRATIVE: CASE EVENT DATE: 20180215
